FAERS Safety Report 25716907 (Version 1)
Quarter: 2025Q3

REPORT INFORMATION
  Report Type: Report from Study
  Country: US (occurrence: US)
  Receive Date: 20250822
  Receipt Date: 20250822
  Transmission Date: 20251021
  Serious: Yes (Hospitalization)
  Sender: GALDERMA
  Company Number: US-GALDERMA-US2025013713

PATIENT

DRUGS (1)
  1. NEMOLIZUMAB [Suspect]
     Active Substance: NEMOLIZUMAB
     Indication: Dermatitis atopic
     Route: 058
     Dates: start: 20250729, end: 20250729

REACTIONS (9)
  - Joint swelling [Recovering/Resolving]
  - Skin weeping [Recovering/Resolving]
  - Staphylococcal infection [Recovering/Resolving]
  - Skin burning sensation [Unknown]
  - Feeling abnormal [Recovering/Resolving]
  - Chills [Recovering/Resolving]
  - Peripheral swelling [Recovering/Resolving]
  - Erythema [Recovering/Resolving]
  - Urticaria [Recovering/Resolving]

NARRATIVE: CASE EVENT DATE: 20250101
